FAERS Safety Report 7104877-0 (Version None)
Quarter: 2010Q4

REPORT INFORMATION
  Report Type: 
  Country: None (occurrence: None)
  Receive Date: 20101116
  Receipt Date: 20101112
  Transmission Date: 20110411
  Serious: Yes (Death, Hospitalization, Disabling)
  Sender: FDA-Public Use
  Company Number: HU-BRISTOL-MYERS SQUIBB COMPANY-14592877

PATIENT
  Age: 75 Year
  Sex: Male
  Weight: 75 kg

DRUGS (11)
  1. CISPLATIN [Suspect]
     Indication: GASTROOESOPHAGEAL CANCER
     Dosage: FREQ-ON D1 OF CYCLE.
     Route: 042
     Dates: start: 20090216, end: 20100309
  2. XELODA [Suspect]
     Indication: GASTROOESOPHAGEAL CANCER
     Dosage: FREQ-ON DAY 1-15. RESTARTED ON 02MAR+ DISCONTD ON 09MAR09. TABS
     Route: 048
     Dates: start: 20090216, end: 20090309
  3. HYDROCHLOROTHIAZIDE [Concomitant]
     Dates: start: 19530101
  4. AMLODIPINE [Concomitant]
     Dates: start: 19530101
  5. ACETYLSALICYLIC ACID SRT [Concomitant]
     Dates: start: 19530101
  6. DICLOFENAC SODIUM [Concomitant]
     Indication: PROPHYLAXIS
     Dates: start: 20090101
  7. METOPROLOL [Concomitant]
     Dates: start: 19530101
  8. IRBESARTAN [Concomitant]
     Dates: start: 19530101
  9. SODIUM PICOSULFATE [Concomitant]
     Dosage: 1DF-20GTT
     Dates: start: 20090221, end: 20090222
  10. RINDEX [Concomitant]
     Dosage: RINDEX 5
     Dates: start: 20090226, end: 20090226
  11. POTASSIUM CHLORIDE [Concomitant]
     Dates: start: 20090226, end: 20090226

REACTIONS (5)
  - CARDIOPULMONARY FAILURE [None]
  - DEHYDRATION [None]
  - DIARRHOEA [None]
  - MUCOSAL INFLAMMATION [None]
  - PERFORMANCE STATUS DECREASED [None]
